FAERS Safety Report 8052481-2 (Version None)
Quarter: 2012Q1

REPORT INFORMATION
  Report Type: 
  Country: None (occurrence: None)
  Receive Date: 20120118
  Receipt Date: 20120113
  Transmission Date: 20120608
  Serious: Yes (Hospitalization)
  Sender: FDA-Public Use
  Company Number: US-PFIZER INC-2012010993

PATIENT
  Sex: Male
  Weight: 104 kg

DRUGS (1)
  1. NEURONTIN [Suspect]
     Indication: PAIN IN EXTREMITY
     Dosage: 1600 MG, 2X/DAY
     Route: 048
     Dates: start: 20100101

REACTIONS (2)
  - INFECTION [None]
  - WOUND [None]
